FAERS Safety Report 17200632 (Version 1)
Quarter: 2019Q4

REPORT INFORMATION
  Report Type: Spontaneous
  Country: CA (occurrence: CA)
  Receive Date: 20191226
  Receipt Date: 20191226
  Transmission Date: 20200122
  Serious: Yes (Other)
  Sender: FDA-Public Use
  Company Number: CA-TEVA-2019-CA-1156581

PATIENT
  Age: 84 Year
  Sex: Male

DRUGS (15)
  1. ACETAMINOPHEN. [Suspect]
     Active Substance: ACETAMINOPHEN
     Indication: PAIN
     Route: 065
  2. MORPHINE SULFATE. [Suspect]
     Active Substance: MORPHINE SULFATE
     Indication: CANCER PAIN
  3. METHADONE [Suspect]
     Active Substance: METHADONE HYDROCHLORIDE
     Indication: PAIN
     Route: 065
  4. METHADONE [Suspect]
     Active Substance: METHADONE HYDROCHLORIDE
     Indication: CANCER PAIN
  5. DEXAMETHASONE. [Suspect]
     Active Substance: DEXAMETHASONE
     Indication: PAIN
     Route: 065
  6. PREGABALIN. [Suspect]
     Active Substance: PREGABALIN
     Indication: PAIN
     Route: 065
  7. DEXAMETHASONE. [Suspect]
     Active Substance: DEXAMETHASONE
     Indication: CAUDA EQUINA SYNDROME
     Dosage: 16 MILLIGRAM DAILY;
     Route: 065
  8. DEXAMETHASONE. [Suspect]
     Active Substance: DEXAMETHASONE
     Indication: CANCER PAIN
  9. MORPHINE SULFATE. [Suspect]
     Active Substance: MORPHINE SULFATE
     Indication: PAIN
     Route: 065
  10. PREGABALIN. [Suspect]
     Active Substance: PREGABALIN
     Indication: CAUDA EQUINA SYNDROME
     Dosage: 100 MILLIGRAM DAILY;
     Route: 065
  11. ACETAMINOPHEN. [Suspect]
     Active Substance: ACETAMINOPHEN
     Indication: CAUDA EQUINA SYNDROME
     Dosage: 4000 MILLIGRAM DAILY;
     Route: 065
  12. MORPHINE SULFATE. [Suspect]
     Active Substance: MORPHINE SULFATE
     Indication: CAUDA EQUINA SYNDROME
     Dosage: 30 MILLIGRAM DAILY;
     Route: 065
  13. ACETAMINOPHEN. [Suspect]
     Active Substance: ACETAMINOPHEN
     Indication: CANCER PAIN
     Route: 065
  14. PREGABALIN. [Suspect]
     Active Substance: PREGABALIN
     Indication: CANCER PAIN
  15. METHADONE [Suspect]
     Active Substance: METHADONE HYDROCHLORIDE
     Indication: CAUDA EQUINA SYNDROME
     Dosage: 4 MILLIGRAM DAILY;
     Route: 065

REACTIONS (5)
  - Off label use [Unknown]
  - Therapeutic product effect incomplete [Unknown]
  - Delirium [Unknown]
  - Product use in unapproved indication [Unknown]
  - Somnolence [Unknown]
